FAERS Safety Report 21103115 (Version 1)
Quarter: 2022Q3

REPORT INFORMATION
  Report Type: Spontaneous
  Country: CA (occurrence: CA)
  Receive Date: 20220720
  Receipt Date: 20220720
  Transmission Date: 20221026
  Serious: Yes (Other)
  Sender: FDA-Public Use
  Company Number: CA-ABBVIE-22K-028-4473304-00

PATIENT
  Age: 40 Year
  Sex: Female

DRUGS (1)
  1. HUMIRA [Suspect]
     Active Substance: ADALIMUMAB
     Indication: Crohn^s disease
     Route: 058

REACTIONS (6)
  - Oropharyngeal blistering [Unknown]
  - Vulvovaginal pruritus [Unknown]
  - Blister [Unknown]
  - Iron deficiency [Unknown]
  - Abdominal pain [Unknown]
  - Proctalgia [Unknown]
